FAERS Safety Report 17721593 (Version 7)
Quarter: 2020Q4

REPORT INFORMATION
  Report Type: Report from Study
  Country: US (occurrence: US)
  Receive Date: 20200429
  Receipt Date: 20201019
  Transmission Date: 20210113
  Serious: Yes (Death)
  Sender: FDA-Public Use
  Company Number: NVSC2020US112742

PATIENT
  Sex: Female

DRUGS (6)
  1. PIQRAY [Suspect]
     Active Substance: ALPELISIB
     Dosage: UNK
     Route: 048
  2. HYDROCODONE/ACETAMINOPHEN [Concomitant]
     Active Substance: ACETAMINOPHEN\HYDROCODONE
     Indication: PRODUCT USED FOR UNKNOWN INDICATION
     Dosage: UNK
     Route: 065
  3. PIQRAY [Suspect]
     Active Substance: ALPELISIB
     Indication: BREAST CANCER FEMALE
     Dosage: 300 MG, QD (TABLET PACK), SWALLOW WHOLE WITH WATER AND FOOD
     Route: 048
  4. POTASSIUM [Concomitant]
     Active Substance: POTASSIUM
     Indication: PRODUCT USED FOR UNKNOWN INDICATION
     Dosage: UNK
     Route: 065
  5. AMLODIPINE BESILAAT SANDOZ [Concomitant]
     Indication: PRODUCT USED FOR UNKNOWN INDICATION
     Dosage: UNK
     Route: 065
  6. PIQRAY [Suspect]
     Active Substance: ALPELISIB
     Dosage: 300 MG, QD (TABLET PACK), SWALLOW WHOLE WITH WATER AND FOOD
     Route: 048

REACTIONS (10)
  - Second primary malignancy [Fatal]
  - Nail discolouration [Unknown]
  - Tumour marker abnormal [Unknown]
  - Fatigue [Unknown]
  - Dry skin [Unknown]
  - Blood glucose increased [Recovered/Resolved with Sequelae]
  - Gastric cancer [Fatal]
  - Back pain [Unknown]
  - Nausea [Unknown]
  - Blood pressure decreased [Unknown]
